FAERS Safety Report 10653137 (Version 1)
Quarter: 2014Q4

REPORT INFORMATION
  Report Type: Spontaneous
  Country: MT (occurrence: MT)
  Receive Date: 20141215
  Receipt Date: 20141215
  Transmission Date: 20150529
  Serious: Yes (Hospitalization, Other)
  Sender: FDA-Public Use
  Company Number: MT-GLAXOSMITHKLINE-MT2014GSK035217

PATIENT
  Sex: Female

DRUGS (2)
  1. ZINNAT [Suspect]
     Active Substance: CEFUROXIME AXETIL
     Indication: URINARY TRACT INFECTION
     Dosage: UNK
  2. ANTI-EPILEPTIC DRUG [Concomitant]
     Indication: EPILEPSY

REACTIONS (3)
  - Head injury [Unknown]
  - Fall [Unknown]
  - Seizure [Recovered/Resolved]
